FAERS Safety Report 20585769 (Version 1)
Quarter: 2022Q1

REPORT INFORMATION
  Report Type: Spontaneous
  Country: US (occurrence: US)
  Receive Date: 20220312
  Receipt Date: 20220312
  Transmission Date: 20220424
  Serious: No
  Sender: FDA-Public Use
  Company Number: US-TEVA-2022-US-2009863

PATIENT

DRUGS (1)
  1. HYDRALAZINE [Suspect]
     Active Substance: HYDRALAZINE HYDROCHLORIDE
     Route: 065

REACTIONS (5)
  - Dysuria [Unknown]
  - Burning sensation [Unknown]
  - Throat irritation [Unknown]
  - Abdominal discomfort [Unknown]
  - Paraesthesia [Unknown]
